FAERS Safety Report 17745475 (Version 1)
Quarter: 2020Q2

REPORT INFORMATION
  Report Type: Spontaneous
  Country: US (occurrence: US)
  Receive Date: 20200504
  Receipt Date: 20200504
  Transmission Date: 20200714
  Serious: No
  Sender: FDA-Public Use
  Company Number: None

PATIENT

DRUGS (2)
  1. FINASTERIDE. [Suspect]
     Active Substance: FINASTERIDE
  2. MINOXIDIL. [Suspect]
     Active Substance: MINOXIDIL

REACTIONS (6)
  - Dizziness [None]
  - Product contamination [None]
  - Product formulation issue [None]
  - Product preparation error [None]
  - Palpitations [None]
  - Unevaluable event [None]

NARRATIVE: CASE EVENT DATE: 20200429
